FAERS Safety Report 17799195 (Version 2)
Quarter: 2020Q2

REPORT INFORMATION
  Report Type: Spontaneous
  Country: CA (occurrence: CA)
  Receive Date: 20200518
  Receipt Date: 20200630
  Transmission Date: 20200714
  Serious: Yes (Other)
  Sender: FDA-Public Use
  Company Number: CA-PFIZER INC-2020193826

PATIENT
  Sex: Female

DRUGS (1)
  1. ADVIL [Suspect]
     Active Substance: IBUPROFEN
     Indication: PAIN
     Dosage: 400 MG (1 PILL), SINGLE
     Dates: start: 20200514, end: 20200514

REACTIONS (3)
  - Product size issue [Unknown]
  - Arthritis [Unknown]
  - Choking [Unknown]

NARRATIVE: CASE EVENT DATE: 20200514
